FAERS Safety Report 7997166-3 (Version None)
Quarter: 2011Q4

REPORT INFORMATION
  Report Type: 
  Country: None (occurrence: None)
  Receive Date: 20111221
  Receipt Date: 20111219
  Transmission Date: 20120403
  Serious: Yes (Hospitalization)
  Sender: FDA-Public Use
  Company Number: US-BRACCO-007287

PATIENT
  Sex: Female
  Weight: 73 kg

DRUGS (2)
  1. PROHANCE [Suspect]
     Indication: INFECTION
     Route: 042
     Dates: start: 20111219, end: 20111219
  2. PROHANCE [Suspect]
     Indication: NUCLEAR MAGNETIC RESONANCE IMAGING
     Route: 042
     Dates: start: 20111219, end: 20111219

REACTIONS (2)
  - RESPIRATORY ARREST [None]
  - SNEEZING [None]
